FAERS Safety Report 23093631 (Version 1)
Quarter: 2023Q4

REPORT INFORMATION
  Report Type: Spontaneous
  Country: DK (occurrence: None)
  Receive Date: 20231023
  Receipt Date: 20231023
  Transmission Date: 20240110
  Serious: Yes (Life-Threatening, Hospitalization)
  Sender: FDA-Public Use
  Company Number: 2023A236624

PATIENT
  Age: 31 Year
  Sex: Female
  Weight: 75 kg

DRUGS (2)
  1. SAPHNELO [Suspect]
     Active Substance: ANIFROLUMAB-FNIA
     Indication: Systemic lupus erythematosus
     Dosage: DOSAGE: 300 MG HVER 4. UGE
     Route: 042
     Dates: start: 20230808, end: 20230927
  2. PLAQUENIL [Concomitant]
     Active Substance: HYDROXYCHLOROQUINE SULFATE
     Indication: Systemic lupus erythematosus
     Dates: start: 20141110

REACTIONS (7)
  - Vomiting [Unknown]
  - Abdominal pain [Unknown]
  - Herpes simplex [Recovering/Resolving]
  - Headache [Unknown]
  - Systemic viral infection [Recovering/Resolving]
  - Herpes simplex hepatitis [Unknown]
  - Pyrexia [Unknown]

NARRATIVE: CASE EVENT DATE: 20230901
